FAERS Safety Report 9202389 (Version 2)
Quarter: 2013Q4

REPORT INFORMATION
  Report Type: Spontaneous
  Country: US (occurrence: US)
  Receive Date: 20130401
  Receipt Date: 20131127
  Transmission Date: 20140711
  Serious: Yes (Other)
  Sender: FDA-Public Use
  Company Number: US-BAYER-2013-039137

PATIENT
  Age: 26 Year
  Sex: Female
  Weight: 97.05 kg

DRUGS (5)
  1. YASMIN [Suspect]
  2. YAZ [Suspect]
  3. ISONIAZID [Concomitant]
  4. COLACE [Concomitant]
  5. VITAMIN B6 [Concomitant]

REACTIONS (5)
  - Cholelithiasis [None]
  - Gallbladder injury [None]
  - Injury [None]
  - Pain [None]
  - Pain [None]
